FAERS Safety Report 13102694 (Version 1)
Quarter: 2017Q1

REPORT INFORMATION
  Report Type: Spontaneous
  Country: US (occurrence: US)
  Receive Date: 20170110
  Receipt Date: 20170110
  Transmission Date: 20170428
  Serious: Yes (Hospitalization)
  Sender: FDA-Public Use
  Company Number: US-MAYNE PHARMA-2016MYN000718

PATIENT
  Age: 44 Year
  Sex: Male

DRUGS (6)
  1. LOTENSIN [Concomitant]
     Active Substance: BENAZEPRIL HYDROCHLORIDE
  2. DEPAKOTE [Concomitant]
     Active Substance: DIVALPROEX SODIUM
  3. CLOZAPINE. [Suspect]
     Active Substance: CLOZAPINE
     Dosage: 150 MG EVERY MORNING, 400 MG AT BEDTIME
     Route: 048
     Dates: start: 20161010
  4. DESYREL [Concomitant]
     Active Substance: TRAZODONE HYDROCHLORIDE
  5. CLOZAPINE. [Suspect]
     Active Substance: CLOZAPINE
     Indication: SCHIZOPHRENIA
     Dosage: UNK
     Route: 048
  6. MOTRIN [Concomitant]
     Active Substance: IBUPROFEN

REACTIONS (3)
  - Thinking abnormal [Unknown]
  - Flat affect [Unknown]
  - Depressed mood [Unknown]

NARRATIVE: CASE EVENT DATE: 20161002
